FAERS Safety Report 16982819 (Version 1)
Quarter: 2019Q4

REPORT INFORMATION
  Report Type: Spontaneous
  Country: US (occurrence: US)
  Receive Date: 20191030
  Receipt Date: 20191030
  Transmission Date: 20200122
  Serious: No
  Sender: FDA-Public Use
  Company Number: None

PATIENT
  Age: 8 Week
  Sex: Female
  Weight: 68.04 kg

DRUGS (1)
  1. COPPER IUD [Suspect]
     Active Substance: COPPER

REACTIONS (3)
  - Device expulsion [None]
  - Device breakage [None]
  - Complication of device removal [None]

NARRATIVE: CASE EVENT DATE: 20191012
